FAERS Safety Report 10888653 (Version 2)
Quarter: 2017Q3

REPORT INFORMATION
  Report Type: Spontaneous
  Country: JP (occurrence: JP)
  Receive Date: 20150305
  Receipt Date: 20170724
  Transmission Date: 20171127
  Serious: Yes (Death, Other)
  Sender: FDA-Public Use
  Company Number: PHJP2015JP001890

PATIENT
  Age: 14 Year
  Sex: Male
  Weight: 69.4 kg

DRUGS (2)
  1. AFINITOR [Suspect]
     Active Substance: EVEROLIMUS
     Dosage: 10 MG, QD
     Route: 048
  2. AFINITOR [Suspect]
     Active Substance: EVEROLIMUS
     Indication: RENAL CELL CARCINOMA STAGE IV
     Dosage: 5 MG, QD
     Route: 048

REACTIONS (6)
  - Metastases to lymph nodes [Unknown]
  - Renal cell carcinoma [Fatal]
  - Malignant neoplasm progression [Fatal]
  - Metastases to retroperitoneum [Unknown]
  - Metastases to lung [Fatal]
  - Hypertension [Recovering/Resolving]
